FAERS Safety Report 7739143-3 (Version None)
Quarter: 2011Q3

REPORT INFORMATION
  Report Type: 
  Country: None (occurrence: None)
  Receive Date: 20110909
  Receipt Date: 20110902
  Transmission Date: 20111222
  Serious: No
  Sender: FDA-Public Use
  Company Number: US-BIOGENIDEC-2011BI034225

PATIENT
  Sex: Male

DRUGS (1)
  1. TYSABRI [Suspect]
     Indication: MULTIPLE SCLEROSIS
     Route: 042
     Dates: start: 20091223

REACTIONS (6)
  - EYE PAIN [None]
  - MULTIPLE SCLEROSIS [None]
  - OCULAR HYPERAEMIA [None]
  - EYE INFECTION [None]
  - EYE DISORDER [None]
  - ORAL HERPES [None]
